FAERS Safety Report 7212481-9 (Version None)
Quarter: 2011Q1

REPORT INFORMATION
  Report Type: 
  Country: None (occurrence: None)
  Receive Date: 20110106
  Receipt Date: 20101228
  Transmission Date: 20110831
  Serious: Yes (Death, Other)
  Sender: FDA-Public Use
  Company Number: US-GENZYME-FLUD-1000574

PATIENT

DRUGS (15)
  1. FLUDARA [Suspect]
     Indication: CHRONIC LYMPHOCYTIC LEUKAEMIA
     Dosage: 25 MG/M2, QD DAY 1-5
     Route: 042
  2. RITUXIMAB [Suspect]
     Dosage: 325 MG/M2, QD ON DAY 3, CYCLE 1
     Route: 042
  3. RITUXIMAB [Suspect]
     Dosage: 375 MG/M2, QD ON DAY 5, CYCLE 1
     Route: 042
  4. FLUDARA [Suspect]
     Dosage: 25 MG/M2, QD DAY 1-5
     Route: 042
  5. FLUDARA [Suspect]
     Dosage: 25 MG/M2, QD DAY 1-5
     Route: 042
  6. FLUDARA [Suspect]
     Dosage: 25 MG/M2, QD DAY 1-5
     Route: 042
  7. RITUXIMAB [Suspect]
     Dosage: 375 MG/M2, QD ON DAY 1, CYCLE 2
     Route: 042
  8. RITUXIMAB [Suspect]
     Dosage: 375 MG/M2, QD ON DAY 1, CYCLE 3
     Route: 042
  9. RITUXIMAB [Suspect]
     Indication: CHRONIC LYMPHOCYTIC LEUKAEMIA
     Dosage: 50 MG/M2, QD ON DAY 1, CYCLE 1
     Route: 042
  10. RITUXIMAB [Suspect]
     Dosage: 375 MG/M2, QD ON DAY 1, CYCLE 4
     Route: 042
  11. RITUXIMAB [Suspect]
     Dosage: 375 MG/M2, QD ON DAY 1, CYCLE 6
     Route: 042
  12. FLUDARA [Suspect]
     Dosage: 25 MG/M2, QD DAY 1-5
     Route: 042
  13. FLUDARA [Suspect]
     Dosage: 25 MG/M2, QD DAY 1-5
     Route: 042
  14. RITUXIMAB [Suspect]
     Dosage: 375 MG/M2, QD ON DAY 1, CYCLE 5
     Route: 042
  15. ALLOPURINOL [Concomitant]
     Indication: PRODUCT USED FOR UNKNOWN INDICATION
     Dosage: 300 MG, QD, DAYS 1-14 OF CYCLE 1
     Route: 065

REACTIONS (34)
  - MENINGITIS LISTERIA [None]
  - GLOMERULONEPHROPATHY [None]
  - PANCYTOPENIA [None]
  - HEPATIC FUNCTION ABNORMAL [None]
  - NEUTROPENIA [None]
  - ANAEMIA HAEMOLYTIC AUTOIMMUNE [None]
  - FEBRILE NEUTROPENIA [None]
  - NAUSEA [None]
  - DISEASE PROGRESSION [None]
  - RASH [None]
  - MENINGITIS VIRAL [None]
  - HYPERGLYCAEMIA [None]
  - ACUTE RESPIRATORY DISTRESS SYNDROME [None]
  - PNEUMOCYSTIS JIROVECI PNEUMONIA [None]
  - THROMBOCYTOPENIA [None]
  - CYTOMEGALOVIRUS INFECTION [None]
  - RENAL FAILURE ACUTE [None]
  - TRANSAMINASES INCREASED [None]
  - VOMITING [None]
  - CEREBROVASCULAR ACCIDENT [None]
  - EPSTEIN-BARR VIRAEMIA [None]
  - PYREXIA [None]
  - MULTI-ORGAN FAILURE [None]
  - PNEUMONIA LEGIONELLA [None]
  - URTICARIA [None]
  - GRAFT VERSUS HOST DISEASE [None]
  - ANAEMIA [None]
  - PRURITUS [None]
  - SEPSIS [None]
  - CHRONIC LYMPHOCYTIC LEUKAEMIA [None]
  - HEPATITIS [None]
  - PAIN [None]
  - INFECTION [None]
  - FATIGUE [None]
